FAERS Safety Report 19025915 (Version 1)
Quarter: 2021Q1

REPORT INFORMATION
  Report Type: Spontaneous
  Country: US (occurrence: US)
  Receive Date: 20210316
  Receipt Date: 20210316
  Transmission Date: 20210420
  Serious: No
  Sender: FDA-Public Use
  Company Number: None

PATIENT
  Age: 90 Year
  Sex: Male
  Weight: 108.86 kg

DRUGS (1)
  1. COSENTYX [Suspect]
     Active Substance: SECUKINUMAB
     Indication: PSORIASIS
     Dosage: INJECT 150MG (1 PEN) SUBCUTANEOUSLY ONCE A WEEK FOR 5 WEEKS  AS DIRECTED
     Route: 058
     Dates: start: 201912

REACTIONS (1)
  - Hospitalisation [None]
